FAERS Safety Report 23125285 (Version 1)
Quarter: 2023Q4

REPORT INFORMATION
  Report Type: Spontaneous
  Country: CO (occurrence: CO)
  Receive Date: 20231030
  Receipt Date: 20231030
  Transmission Date: 20240110
  Serious: Yes (Death, Other)
  Sender: FDA-Public Use
  Company Number: CO-SUN PHARMACEUTICAL INDUSTRIES LTD-2023R1-415056

PATIENT
  Age: 80 Year
  Sex: Female

DRUGS (9)
  1. DIGOXIN [Suspect]
     Active Substance: DIGOXIN
     Indication: Acidosis
     Dosage: UNK
     Route: 065
  2. DIGOXIN [Suspect]
     Active Substance: DIGOXIN
     Indication: Shock
  3. DIGOXIN [Suspect]
     Active Substance: DIGOXIN
     Indication: Multiple organ dysfunction syndrome
  4. PHYTONADIONE [Suspect]
     Active Substance: PHYTONADIONE
     Indication: Multiple organ dysfunction syndrome
     Dosage: UNK
     Route: 065
  5. PHYTONADIONE [Suspect]
     Active Substance: PHYTONADIONE
     Indication: Acidosis
  6. PHYTONADIONE [Suspect]
     Active Substance: PHYTONADIONE
     Indication: Shock
  7. DEXTROSE [Suspect]
     Active Substance: DEXTROSE\DEXTROSE MONOHYDRATE
     Indication: Shock
     Dosage: UNK
     Route: 065
  8. DEXTROSE [Suspect]
     Active Substance: DEXTROSE\DEXTROSE MONOHYDRATE
     Indication: Multiple organ dysfunction syndrome
  9. DEXTROSE [Suspect]
     Active Substance: DEXTROSE\DEXTROSE MONOHYDRATE
     Indication: Acidosis

REACTIONS (2)
  - Drug ineffective [Fatal]
  - Sepsis [Fatal]
